FAERS Safety Report 9402940 (Version 1)
Quarter: 2013Q3

REPORT INFORMATION
  Report Type: Spontaneous
  Country: DE (occurrence: DE)
  Receive Date: 20130716
  Receipt Date: 20130716
  Transmission Date: 20140515
  Serious: Yes (Hospitalization, Other)
  Sender: FDA-Public Use
  Company Number: DE-BAYER-2013-084696

PATIENT
  Age: 67 Year
  Sex: Male
  Weight: 70 kg

DRUGS (1)
  1. LEVITRA [Suspect]
     Indication: ERECTILE DYSFUNCTION
     Dosage: 10 MG, PRN (4-5TIMES/ WEEK)
     Route: 048
     Dates: start: 2008, end: 201306

REACTIONS (18)
  - Thrombosis [Recovering/Resolving]
  - Chest pain [Recovered/Resolved]
  - Acute coronary syndrome [None]
  - Dyspnoea [Recovered/Resolved]
  - Pulmonary embolism [None]
  - Pleural effusion [Recovered/Resolved]
  - Pneumonia [Recovered/Resolved]
  - Pulmonary haematoma [Recovered/Resolved]
  - Pleurisy [Recovered/Resolved]
  - Lung operation [None]
  - Diarrhoea [Recovered/Resolved]
  - Constipation [Recovered/Resolved]
  - Pyrexia [Recovered/Resolved]
  - Erythema [Recovered/Resolved]
  - Local swelling [Recovered/Resolved]
  - Weight decreased [Not Recovered/Not Resolved]
  - Night sweats [Not Recovered/Not Resolved]
  - Weight decreased [Not Recovered/Not Resolved]
